FAERS Safety Report 14110764 (Version 1)
Quarter: 2017Q4

REPORT INFORMATION
  Report Type: Spontaneous
  Country: US (occurrence: None)
  Receive Date: 20171019
  Receipt Date: 20171019
  Transmission Date: 20180321
  Serious: No
  Sender: FDA-Public Use
  Company Number: None

PATIENT
  Age: 67 Year
  Sex: Female
  Weight: 90.49 kg

DRUGS (1)
  1. HYDROCHLOROTHIAZIDE /TRIAMTERENE [Suspect]
     Active Substance: HYDROCHLOROTHIAZIDE\TRIAMTERENE
     Indication: HYPERTENSION
     Route: 048
     Dates: start: 20170710, end: 20170713

REACTIONS (3)
  - Throat irritation [None]
  - Respiratory disorder [None]
  - Dysphonia [None]

NARRATIVE: CASE EVENT DATE: 20170713
